FAERS Safety Report 8728620 (Version 3)
Quarter: 2012Q4

REPORT INFORMATION
  Report Type: 
  Country: GB (occurrence: GB)
  Receive Date: 20120817
  Receipt Date: 20121023
  Transmission Date: 20130627
  Serious: Yes (Other)
  Sender: FDA-Public Use
  Company Number: PHHY2012GB069496

PATIENT
  Sex: Female

DRUGS (6)
  1. WARFARIN [Suspect]
     Indication: ANTICOAGULANT THERAPY
     Dosage: 1.5 mg, UNK
     Dates: start: 20080727
  2. MULTAQ [Interacting]
     Dosage: 800 mg, UNK
     Dates: start: 20120712
  3. RAMIPRIL [Concomitant]
  4. ATENOLOL [Concomitant]
  5. AMITRIPTYLINE [Concomitant]
  6. DIAZEPAM [Concomitant]

REACTIONS (3)
  - International normalised ratio increased [Not Recovered/Not Resolved]
  - Drug interaction [Not Recovered/Not Resolved]
  - Blood pressure decreased [Not Recovered/Not Resolved]
